FAERS Safety Report 10737347 (Version 2)
Quarter: 2015Q1

REPORT INFORMATION
  Report Type: Spontaneous
  Country: CN (occurrence: CN)
  Receive Date: 20150126
  Receipt Date: 20150204
  Transmission Date: 20150721
  Serious: Yes (Hospitalization)
  Sender: FDA-Public Use
  Company Number: CN-PFIZER INC-2015026538

PATIENT
  Age: 67 Year
  Sex: Female

DRUGS (2)
  1. CORDARONE [Suspect]
     Active Substance: AMIODARONE HYDROCHLORIDE
     Indication: ATRIAL FIBRILLATION
     Dosage: 450 MG, 2X/DAY
     Route: 041
     Dates: start: 20140808, end: 20140811
  2. CORDARONE [Suspect]
     Active Substance: AMIODARONE HYDROCHLORIDE
     Indication: ATRIAL FIBRILLATION
     Dosage: UNK
     Route: 048
     Dates: start: 20140812, end: 20140812

REACTIONS (5)
  - Hepatitis acute [Recovering/Resolving]
  - Cholecystitis [Recovering/Resolving]
  - Cholelithiasis [Recovering/Resolving]
  - Respiratory tract congestion [Recovering/Resolving]
  - Sleep disorder [Recovering/Resolving]

NARRATIVE: CASE EVENT DATE: 20140812
